FAERS Safety Report 10293700 (Version 1)
Quarter: 2014Q3

REPORT INFORMATION
  Report Type: Spontaneous
  Country: US (occurrence: US)
  Receive Date: 20140710
  Receipt Date: 20140710
  Transmission Date: 20150326
  Serious: No
  Sender: FDA-Public Use
  Company Number: US-PURDUE-USA-2013-0109899

PATIENT
  Sex: Male
  Weight: 57.6 kg

DRUGS (3)
  1. BUTRANS [Suspect]
     Active Substance: BUPRENORPHINE
     Dosage: 5 MCG/HR, WEEKLY
     Route: 062
     Dates: start: 201309
  2. BUTRANS [Suspect]
     Active Substance: BUPRENORPHINE
     Dosage: 10 UNK, UNK
     Route: 062
  3. BUTRANS [Suspect]
     Active Substance: BUPRENORPHINE
     Indication: BACK PAIN
     Dosage: 20 UNK, UNK
     Route: 062

REACTIONS (5)
  - Constipation [Unknown]
  - Product packaging quantity issue [Unknown]
  - Application site warmth [Unknown]
  - Drug effect increased [Unknown]
  - Drug ineffective [Unknown]
